FAERS Safety Report 7073854-0 (Version None)
Quarter: 2010Q4

REPORT INFORMATION
  Report Type: 
  Country: None (occurrence: None)
  Receive Date: 20101029
  Receipt Date: 20100913
  Transmission Date: 20110411
  Serious: No
  Sender: FDA-Public Use
  Company Number: A0877697A

PATIENT
  Age: 69 Year
  Sex: Male
  Weight: 63.6 kg

DRUGS (1)
  1. ADVAIR DISKUS 100/50 [Suspect]
     Indication: CHRONIC OBSTRUCTIVE PULMONARY DISEASE
     Route: 065
     Dates: start: 20100728, end: 20100825

REACTIONS (2)
  - ECCHYMOSIS [None]
  - RASH [None]
